FAERS Safety Report 10264348 (Version 4)
Quarter: 2015Q2

REPORT INFORMATION
  Report Type: Spontaneous
  Country: US (occurrence: US)
  Receive Date: 20140627
  Receipt Date: 20150623
  Transmission Date: 20150821
  Serious: Yes (Hospitalization, Other)
  Sender: FDA-Public Use
  Company Number: US-009507513-1406USA012506

PATIENT
  Sex: Male
  Weight: 95.24 kg

DRUGS (1)
  1. PROPECIA [Suspect]
     Active Substance: FINASTERIDE
     Indication: ALOPECIA
     Dosage: 1 MG, QD
     Route: 048
     Dates: start: 2002, end: 20100830

REACTIONS (26)
  - Fatigue [Unknown]
  - Urine flow decreased [Unknown]
  - Blood bilirubin increased [Not Recovered/Not Resolved]
  - Anxiety [Unknown]
  - Testicular pain [Unknown]
  - Surgery [Unknown]
  - Arthralgia [Unknown]
  - Rash [Unknown]
  - Loss of libido [Unknown]
  - Blood testosterone decreased [Not Recovered/Not Resolved]
  - Hyperlipidaemia [Unknown]
  - Headache [Unknown]
  - Inflammation [Not Recovered/Not Resolved]
  - Depression [Unknown]
  - Sexual dysfunction [Not Recovered/Not Resolved]
  - Surgery [Unknown]
  - Hypogonadism [Recovered/Resolved]
  - Dizziness [Unknown]
  - Arnold-Chiari malformation [Unknown]
  - Testicular pain [Unknown]
  - Erectile dysfunction [Not Recovered/Not Resolved]
  - Nasal septum deviation [Unknown]
  - Back pain [Unknown]
  - Pollakiuria [Unknown]
  - Skin lesion [Unknown]
  - Arachnoid cyst [Unknown]

NARRATIVE: CASE EVENT DATE: 20050420
